FAERS Safety Report 7737253-8 (Version None)
Quarter: 2011Q3

REPORT INFORMATION
  Report Type: 
  Country: None (occurrence: None)
  Receive Date: 20110908
  Receipt Date: 20110826
  Transmission Date: 20111222
  Serious: Yes (Hospitalization)
  Sender: FDA-Public Use
  Company Number: TW-CELGENEUS-153-21880-11070232

PATIENT
  Sex: Male
  Weight: 50 kg

DRUGS (16)
  1. ISOSORBIDE DINITRATE [Concomitant]
     Indication: OSTEOPOROSIS
  2. REVLIMID [Suspect]
     Dosage: 10 MILLIGRAM
     Route: 048
     Dates: start: 20110706, end: 20110713
  3. DEXAMETHASONE [Concomitant]
     Dosage: 16 MILLIGRAM
     Route: 065
     Dates: start: 20110706, end: 20110712
  4. ISOSORBIDE DINITRATE [Concomitant]
     Route: 065
     Dates: start: 20080708, end: 20110630
  5. PREDNISOLONE [Concomitant]
     Dosage: 5 MILLIGRAM
     Route: 065
     Dates: start: 20110701, end: 20110706
  6. FLURBIPROFEN [Concomitant]
     Indication: OSTEOPOROSIS
     Route: 065
     Dates: start: 20081125
  7. ALFUZOSIN HCL [Concomitant]
     Dosage: 10 MILLIGRAM
     Route: 065
     Dates: start: 20110311, end: 20110617
  8. REVLIMID [Suspect]
     Indication: MULTIPLE MYELOMA
     Dosage: 10 MILLIGRAM
     Route: 048
     Dates: start: 20110603, end: 20110621
  9. ULTRACET [Concomitant]
     Indication: BONE PAIN
     Dosage: 2 DOSAGE FORMS
     Route: 065
     Dates: start: 20070417
  10. PREDNISOLONE [Concomitant]
     Indication: MULTIPLE MYELOMA
     Dosage: 5 MILLIGRAM
     Route: 065
     Dates: start: 20110311
  11. ISOSORBIDE DINITRATE [Concomitant]
     Indication: ANGINA PECTORIS
     Dosage: 5 MILLIGRAM
     Route: 065
     Dates: start: 20070215
  12. ULTRACET [Concomitant]
     Indication: OSTEOPOROSIS
     Route: 065
     Dates: start: 20110329
  13. DEXAMETHASONE [Concomitant]
     Indication: MULTIPLE MYELOMA
     Dosage: 16 MILLIGRAM
     Route: 065
     Dates: start: 20110603
  14. FLURBIPROFEN [Concomitant]
     Route: 065
     Dates: start: 20071218
  15. MAGNESIUM OXIDE [Concomitant]
     Indication: CONSTIPATION
     Route: 065
     Dates: start: 20110516, end: 20110617
  16. HALDOL [Concomitant]
     Route: 065
     Dates: start: 20110720

REACTIONS (4)
  - LARGE INTESTINAL ULCER HAEMORRHAGE [None]
  - MALNUTRITION [None]
  - PNEUMONIA [None]
  - CACHEXIA [None]
